FAERS Safety Report 4584218-3 (Version None)
Quarter: 2005Q1

REPORT INFORMATION
  Report Type: 
  Country: None (occurrence: None)
  Receive Date: 20050216
  Receipt Date: 20050201
  Transmission Date: 20050727
  Serious: Yes (Hospitalization)
  Sender: FDA-Public Use
  Company Number: PERI00204001743

PATIENT
  Age: 82 Year
  Sex: Female

DRUGS (4)
  1. AZANTAC [Suspect]
     Indication: DRUG USE FOR UNKNOWN INDICATION
     Route: 065
     Dates: start: 20040521, end: 20040530
  2. COVERSYL [Suspect]
     Indication: DRUG USE FOR UNKNOWN INDICATION
     Dosage: 4MG PER DAY
     Route: 065
     Dates: start: 20040522, end: 20040531
  3. AROMASIN [Suspect]
  4. CORDARONE [Concomitant]
     Indication: DRUG USE FOR UNKNOWN INDICATION
     Dosage: 200MG PER DAY
     Route: 065
     Dates: start: 20040522, end: 20040531

REACTIONS (2)
  - LEUKOPENIA [None]
  - NEUTROPENIA [None]
